FAERS Safety Report 10537818 (Version 3)
Quarter: 2015Q1

REPORT INFORMATION
  Report Type: Spontaneous
  Country: DE (occurrence: None)
  Receive Date: 20141021
  Receipt Date: 20150205
  Transmission Date: 20150720
  Serious: Yes (Other)
  Sender: FDA-Public Use
  Company Number: 2014-20534

PATIENT
  Age: 70 Year
  Sex: Female

DRUGS (2)
  1. EYLEA [Suspect]
     Active Substance: AFLIBERCEPT
     Dosage: EVERY 9 WEEKS
     Route: 031
     Dates: start: 20140811
  2. EYLEA [Suspect]
     Active Substance: AFLIBERCEPT
     Indication: NEOVASCULAR AGE-RELATED MACULAR DEGENERATION
     Dosage: EVERY 9 WEEKS
     Route: 031
     Dates: start: 20140811

REACTIONS (3)
  - Off label use [None]
  - Multiple use of single-use product [None]
  - Visual acuity reduced [None]

NARRATIVE: CASE EVENT DATE: 201407
